FAERS Safety Report 7473217-X (Version None)
Quarter: 2011Q2

REPORT INFORMATION
  Report Type: 
  Country: None (occurrence: None)
  Receive Date: 20110503
  Receipt Date: 20110421
  Transmission Date: 20111010
  Serious: Yes (Hospitalization, Other)
  Sender: FDA-Public Use
  Company Number: 2011AC000025

PATIENT
  Age: 72 Year
  Sex: Female
  Weight: 97.5234 kg

DRUGS (55)
  1. DILTIAZEM [Concomitant]
  2. BUMEX [Concomitant]
  3. WARFARIN SODIUM [Concomitant]
  4. PRILOSEC [Concomitant]
  5. LIDODERM [Concomitant]
  6. CLARITIN [Concomitant]
  7. NIASPAN [Concomitant]
  8. ZOCOR [Concomitant]
  9. VITAMIN D [Concomitant]
  10. ZEMPLAR [Concomitant]
  11. DOXYCYLINE HYCLATE [Concomitant]
  12. LISPRO INSULIN [Concomitant]
  13. INDEROL [Concomitant]
  14. ISOSORBIDE DINITRATE [Concomitant]
  15. FOSRENOL [Concomitant]
  16. DIGOXIN [Suspect]
     Indication: ATRIAL FIBRILLATION
     Dosage: 0.25 MG;QD;PO
     Route: 048
     Dates: start: 20080205
  17. LEXAPRO [Concomitant]
  18. LORTAB [Concomitant]
  19. ARICEPT [Concomitant]
  20. FERMIN [Concomitant]
  21. NYSTATIN [Concomitant]
  22. CALCIUM GLUCONATE [Concomitant]
  23. PRIMIDONE [Concomitant]
  24. MUSINEX [Concomitant]
  25. LANTUS [Concomitant]
  26. POTASSIUM CHLORIDE [Concomitant]
  27. DIGIBIND [Concomitant]
  28. AUGMENTIN [Concomitant]
  29. EPOGEN [Concomitant]
  30. CEFTRIAZONE [Concomitant]
  31. DIFLUCAN [Concomitant]
  32. ALLEGRA [Concomitant]
  33. VITAMIN D [Concomitant]
  34. FUROSEMIDE [Concomitant]
  35. NEXIUM [Concomitant]
  36. METOPROLOL SUCCINATE [Concomitant]
  37. VANCOMYCIN [Concomitant]
  38. FLORASTOR [Concomitant]
  39. ROBAXIN [Concomitant]
  40. CALCIUM CHLORIDE [Concomitant]
  41. NORVASC [Concomitant]
  42. NAMENDA [Concomitant]
  43. LOVENOX [Concomitant]
  44. ISOSORBIDE DINITRATE [Concomitant]
  45. HYDRALAZINE HCL [Concomitant]
  46. INDERAL [Concomitant]
  47. REGLAN [Concomitant]
  48. MAGNESIUM OXIDE [Concomitant]
  49. ACETAMINOPHEN [Concomitant]
  50. PERCOCET [Concomitant]
  51. BICARBONATE [Concomitant]
  52. KAYEXALATE [Concomitant]
  53. DIOVAN [Concomitant]
  54. ASPIRIN [Concomitant]
  55. ZOCOR [Concomitant]

REACTIONS (37)
  - PULSE ABSENT [None]
  - HYPOPHAGIA [None]
  - MYOCLONUS [None]
  - NOSE DEFORMITY [None]
  - HAEMODIALYSIS [None]
  - APPARENT DEATH [None]
  - BUNDLE BRANCH BLOCK LEFT [None]
  - BLOOD PRESSURE INCREASED [None]
  - ATRIAL FIBRILLATION [None]
  - TREATMENT NONCOMPLIANCE [None]
  - CONFUSIONAL STATE [None]
  - DYSKINESIA [None]
  - SINUSITIS [None]
  - TOXICITY TO VARIOUS AGENTS [None]
  - STAPHYLOCOCCAL SEPSIS [None]
  - RENAL FAILURE ACUTE [None]
  - NODAL RHYTHM [None]
  - TREMOR [None]
  - LACERATION [None]
  - MULTIPLE INJURIES [None]
  - EXCORIATION [None]
  - CONTUSION [None]
  - ABASIA [None]
  - OEDEMA PERIPHERAL [None]
  - BRADYCARDIA [None]
  - RHINITIS ALLERGIC [None]
  - INTERVERTEBRAL DISC PROTRUSION [None]
  - RASH [None]
  - ANAEMIA [None]
  - NEUROPATHY PERIPHERAL [None]
  - FALL [None]
  - ECCHYMOSIS [None]
  - DIABETES MELLITUS [None]
  - ACTIVITIES OF DAILY LIVING IMPAIRED [None]
  - WOUND [None]
  - URINARY TRACT INFECTION [None]
  - BRONCHITIS [None]
